FAERS Safety Report 16740067 (Version 1)
Quarter: 2019Q4

REPORT INFORMATION
  Report Type: Spontaneous
  Country: US (occurrence: US)
  Receive Date: 20190823
  Receipt Date: 20190823
  Transmission Date: 20200122
  Serious: No
  Sender: FDA-Public Use
  Company Number: None

PATIENT
  Age: 23 Year
  Sex: Female
  Weight: 86.4 kg

DRUGS (1)
  1. POLYMYXIN B SULFATE AND TRIMETHOPRIM OPHTHALMIC [Suspect]
     Active Substance: POLYMYXIN B SULFATE\TRIMETHOPRIM SULFATE
     Indication: CONJUNCTIVITIS
     Dates: start: 20190821, end: 20190823

REACTIONS (2)
  - Instillation site reaction [None]
  - Conjunctivitis [None]

NARRATIVE: CASE EVENT DATE: 20190821
